FAERS Safety Report 8087746-1 (Version None)
Quarter: 2012Q1

REPORT INFORMATION
  Report Type: 
  Country: None (occurrence: None)
  Receive Date: 20120128
  Receipt Date: 20110526
  Transmission Date: 20120608
  Serious: No
  Sender: FDA-Public Use
  Company Number: US-ABBOTT-11P-163-0728758-00

PATIENT
  Sex: Female
  Weight: 86.26 kg

DRUGS (6)
  1. NAPROXEN [Concomitant]
     Indication: MIGRAINE
  2. HUMIRA [Suspect]
     Indication: SPONDYLITIS
     Dates: start: 20100701, end: 20101001
  3. UNKNOWN MIGRAINE MEDICATION [Concomitant]
     Indication: MIGRAINE
  4. TOPAMAX [Concomitant]
     Indication: PRODUCT USED FOR UNKNOWN INDICATION
  5. HUMIRA [Suspect]
     Indication: FIBROMYALGIA
  6. RELPAX [Concomitant]
     Indication: PRODUCT USED FOR UNKNOWN INDICATION

REACTIONS (1)
  - DRUG INEFFECTIVE [None]
